FAERS Safety Report 6583651-8 (Version None)
Quarter: 2010Q1

REPORT INFORMATION
  Report Type: 
  Country: None (occurrence: None)
  Receive Date: 20100213
  Receipt Date: 20100213
  Transmission Date: 20100710
  Serious: No
  Sender: FDA-Public Use
  Company Number: None

PATIENT
  Sex: Female
  Weight: 81.6475 kg

DRUGS (1)
  1. DERMA-SMOOTHE/FS [Suspect]
     Indication: DERMATITIS ATOPIC
     Dosage: APPLY THIN FILM TWICE DAILY TOP
     Route: 061

REACTIONS (1)
  - DERMATITIS [None]
